FAERS Safety Report 21629702 (Version 1)
Quarter: 2022Q4

REPORT INFORMATION
  Report Type: Spontaneous
  Country: RU (occurrence: RU)
  Receive Date: 20221122
  Receipt Date: 20221122
  Transmission Date: 20230112
  Serious: Yes (Life-Threatening, Hospitalization, Other)
  Sender: FDA-Public Use
  Company Number: RU-MACLEODS PHARMACEUTICALS US LTD-MAC2022038320

PATIENT

DRUGS (2)
  1. LIDOCAINE [Suspect]
     Active Substance: LIDOCAINE
     Indication: Bronchitis
     Dosage: 3.5 MILLIGRAM, BID (STRENGTH 1%, CEFTRIAXONE 1 G IN 3,5 ML OF 1% LIDOCAINE SOLUTION 2 TIMES A DAY)
     Route: 030
     Dates: start: 20210924
  2. CEFTRIAXONE [Suspect]
     Active Substance: CEFTRIAXONE
     Indication: Bronchitis
     Dosage: 1 GRAM, BID; 1 G IN 3.5 ML OF 1% LIDOCAINE SOLUTION 2 TIMES A DAY
     Route: 030

REACTIONS (2)
  - Kounis syndrome [Recovering/Resolving]
  - Cardiac failure chronic [Recovering/Resolving]

NARRATIVE: CASE EVENT DATE: 20210924
